FAERS Safety Report 15117845 (Version 1)
Quarter: 2018Q3

REPORT INFORMATION
  Report Type: Spontaneous
  Country: US (occurrence: US)
  Receive Date: 20180706
  Receipt Date: 20180706
  Transmission Date: 20181010
  Serious: No
  Sender: FDA-Public Use
  Company Number: US-APTEVO BIOTHERAPEUTICS LLC-18FX00001SP

PATIENT
  Sex: Male

DRUGS (8)
  1. TAMSULOSIN [Concomitant]
     Active Substance: TAMSULOSIN
  2. THIOCTIC ACID [Concomitant]
     Active Substance: THIOCTIC ACID
  3. MONONINE [Concomitant]
     Active Substance: COAGULATION FACTOR IX HUMAN
  4. LOSARTAN. [Concomitant]
     Active Substance: LOSARTAN
  5. IXINITY [Suspect]
     Active Substance: COAGULATION FACTOR IX RECOMBINANT HUMAN
     Indication: FACTOR IX DEFICIENCY
     Dosage: UNK
     Route: 065
     Dates: start: 20180129, end: 20180129
  6. OXYCODONE [Concomitant]
     Active Substance: OXYCODONE
  7. CLONIDINE. [Concomitant]
     Active Substance: CLONIDINE
  8. ACETAMINOPHEN. [Concomitant]
     Active Substance: ACETAMINOPHEN

REACTIONS (3)
  - Headache [Recovered/Resolved]
  - Blood pressure increased [Recovered/Resolved]
  - Dizziness [Recovered/Resolved]

NARRATIVE: CASE EVENT DATE: 20180129
